FAERS Safety Report 9522664 (Version 1)
Quarter: 2013Q3

REPORT INFORMATION
  Report Type: Spontaneous
  Country: FR (occurrence: FR)
  Receive Date: 20130913
  Receipt Date: 20130913
  Transmission Date: 20140515
  Serious: Yes (Hospitalization)
  Sender: FDA-Public Use
  Company Number: FR-ROCHE-1274104

PATIENT
  Age: 28 Year
  Sex: Female

DRUGS (11)
  1. VALIUM [Suspect]
     Indication: ANXIETY
     Dosage: 30 DROPS EQUIVALENT TO 10 MG
     Route: 048
     Dates: start: 20130721, end: 20130805
  2. LARGACTIL [Suspect]
     Indication: PSYCHOTIC DISORDER
     Route: 048
     Dates: start: 20130721
  3. LARGACTIL [Suspect]
     Route: 048
     Dates: start: 20130722
  4. LARGACTIL [Suspect]
     Route: 048
     Dates: start: 20130730, end: 20130806
  5. RISPERDAL [Concomitant]
     Route: 065
  6. NOCTAMIDE [Concomitant]
     Route: 065
  7. TRANXENE [Concomitant]
     Route: 065
     Dates: end: 20130721
  8. TEMESTA (FRANCE) [Concomitant]
     Route: 065
  9. DEROXAT [Concomitant]
     Route: 065
     Dates: end: 20130721
  10. HALDOL [Concomitant]
     Route: 065
     Dates: start: 20130721
  11. NOZINAN (FRANCE) [Concomitant]

REACTIONS (1)
  - Hepatitis [Recovered/Resolved]
